FAERS Safety Report 4974607-7 (Version None)
Quarter: 2006Q2

REPORT INFORMATION
  Report Type: 
  Country: None (occurrence: None)
  Receive Date: 20060410
  Receipt Date: 20060322
  Transmission Date: 20061013
  Serious: Yes (Hospitalization)
  Sender: FDA-Public Use
  Company Number: FR200603005917

PATIENT
  Age: 79 Year
  Sex: Female

DRUGS (9)
  1. FORTEO [Suspect]
     Indication: OSTEOPOROSIS
     Dosage: 20 UG, DAILY (1/D), SUBCUTANEOUS
     Route: 058
     Dates: start: 20060203
  2. FORTEO [Concomitant]
  3. SINTROM [Concomitant]
  4. ALDACTONE [Concomitant]
  5. ISOPTIN [Concomitant]
  6. ATORVASTATIN CALCIUM [Concomitant]
  7. PAROXETINE HYDROCHLORIDE [Concomitant]
  8. RAMIPRIL [Concomitant]
  9. LASIX [Concomitant]

REACTIONS (3)
  - DYSPNOEA [None]
  - EXTRASYSTOLES [None]
  - PALPITATIONS [None]
